FAERS Safety Report 7977198-1 (Version None)
Quarter: 2011Q4

REPORT INFORMATION
  Report Type: 
  Country: None (occurrence: None)
  Receive Date: 20111213
  Receipt Date: 20111114
  Transmission Date: 20120403
  Serious: No
  Sender: FDA-Public Use
  Company Number: US-AMGEN-USASP2011059715

PATIENT
  Age: 75 Year
  Sex: Female

DRUGS (10)
  1. VITAMIN D [Concomitant]
  2. ALPRAZOLAM [Concomitant]
  3. NEXIUM [Concomitant]
  4. FENTANYL [Concomitant]
  5. OXYCODONE HCL [Concomitant]
     Dosage: UNK
  6. METHOTREXATE [Concomitant]
  7. ENBREL [Suspect]
     Indication: RHEUMATOID ARTHRITIS
     Dosage: 50 MG, QWK
     Dates: start: 20100901
  8. LIPITOR [Concomitant]
  9. ESTAZOLAM [Concomitant]
  10. CYMBALTA [Concomitant]

REACTIONS (1)
  - DRUG INEFFECTIVE [None]
